FAERS Safety Report 23856015 (Version 5)
Quarter: 2024Q3

REPORT INFORMATION
  Report Type: Spontaneous
  Country: US (occurrence: US)
  Receive Date: 20240515
  Receipt Date: 20240810
  Transmission Date: 20241017
  Serious: Yes (Hospitalization, Other)
  Sender: UNITED THERAPEUTICS
  Company Number: US-UNITED THERAPEUTICS-UNT-2024-004648

PATIENT
  Age: 78 Year
  Sex: Female

DRUGS (4)
  1. TYVASO [Suspect]
     Active Substance: TREPROSTINIL
     Indication: Pulmonary arterial hypertension
     Dosage: 54 ?G, QID
  2. TYVASO [Suspect]
     Active Substance: TREPROSTINIL
     Dosage: UNK
  3. ALBUTEROL [Concomitant]
     Active Substance: ALBUTEROL
     Indication: Cough
     Dosage: UNK, ABOUT ONCE DAILY
  4. ALBUTEROL [Concomitant]
     Active Substance: ALBUTEROL
     Indication: Choking sensation

REACTIONS (15)
  - Atrial fibrillation [Unknown]
  - Flatulence [Unknown]
  - Cough [Not Recovered/Not Resolved]
  - Productive cough [Not Recovered/Not Resolved]
  - Eructation [Unknown]
  - Increased upper airway secretion [Unknown]
  - Dysphagia [Unknown]
  - Choking sensation [Unknown]
  - Abdominal discomfort [Unknown]
  - Throat irritation [Unknown]
  - Dyspnoea exertional [Unknown]
  - Dyspnoea [Unknown]
  - Flushing [Unknown]
  - Device operational issue [Unknown]
  - Device operational issue [Unknown]

NARRATIVE: CASE EVENT DATE: 20240701
